FAERS Safety Report 5628319-7 (Version None)
Quarter: 2008Q1

REPORT INFORMATION
  Report Type: 
  Country: None (occurrence: None)
  Receive Date: 20080215
  Receipt Date: 20080208
  Transmission Date: 20080703
  Serious: Yes (Death, Life-Threatening, Hospitalization)
  Sender: FDA-Public Use
  Company Number: JM-BOEHRINGER INGELHEIM GMBH, GERMANY-2008-CN-00051CN

PATIENT
  Age: 70 Year
  Sex: Male

DRUGS (3)
  1. FLOMAX [Suspect]
     Indication: BENIGN PROSTATIC HYPERPLASIA
     Route: 048
     Dates: start: 20080205, end: 20080206
  2. UROBACID [Concomitant]
     Dates: start: 20080205, end: 20080206
  3. METFORMIN HCL [Concomitant]

REACTIONS (2)
  - COMA [None]
  - URINARY RETENTION [None]
